FAERS Safety Report 17575471 (Version 1)
Quarter: 2020Q1

REPORT INFORMATION
  Report Type: Spontaneous
  Country: US (occurrence: US)
  Receive Date: 20200318
  Receipt Date: 20200318
  Transmission Date: 20200409
  Serious: Yes (Hospitalization)
  Sender: FDA-Public Use
  Company Number: None

PATIENT
  Age: 19 Year
  Sex: Female

DRUGS (6)
  1. SOD CHL 7% 4ML [Suspect]
     Active Substance: SODIUM CHLORIDE
     Indication: CYSTIC FIBROSIS
     Dates: start: 20131029
  2. KITABIS PAK [Concomitant]
     Active Substance: TOBRAMYCIN
  3. ALBUTEROL. [Suspect]
     Active Substance: ALBUTEROL
  4. CREON [Suspect]
     Active Substance: PANCRELIPASE AMYLASE\PANCRELIPASE LIPASE\PANCRELIPASE PROTEASE
     Indication: CYSTIC FIBROSIS
     Route: 048
     Dates: start: 20130722
  5. PULMOZYME [Concomitant]
     Active Substance: DORNASE ALFA
  6. CAYSTON [Concomitant]
     Active Substance: AZTREONAM

REACTIONS (1)
  - Cough [None]

NARRATIVE: CASE EVENT DATE: 20200307
